FAERS Safety Report 4926129-7 (Version None)
Quarter: 2006Q1

REPORT INFORMATION
  Report Type: 
  Country: None (occurrence: None)
  Receive Date: 20060228
  Receipt Date: 20050823
  Transmission Date: 20060701
  Serious: No
  Sender: FDA-Public Use
  Company Number: US-GLAXOSMITHKLINE-A0571468A

PATIENT
  Age: 46 Year
  Sex: Male
  Weight: 125 kg

DRUGS (5)
  1. LAMICTAL [Suspect]
     Indication: BIPOLAR DISORDER
     Dosage: 100MG PER DAY
     Route: 048
     Dates: start: 20050701, end: 20050823
  2. NEURONTIN [Concomitant]
  3. ZOLOFT [Concomitant]
  4. LITHIUM [Concomitant]
  5. TRAZODONE [Concomitant]

REACTIONS (2)
  - GASTRITIS EROSIVE [None]
  - RASH [None]
